FAERS Safety Report 11850634 (Version 1)
Quarter: 2015Q4

REPORT INFORMATION
  Report Type: Spontaneous
  Country: US (occurrence: US)
  Receive Date: 20151218
  Receipt Date: 20151218
  Transmission Date: 20160305
  Serious: No
  Sender: FDA-Public Use
  Company Number: US-JNJFOC-20151126392

PATIENT
  Age: 8 Year
  Sex: Male
  Weight: 31.75 kg

DRUGS (2)
  1. CHILDRENS ZYRTEC [Suspect]
     Active Substance: CETIRIZINE HYDROCHLORIDE
     Indication: NONSPECIFIC REACTION
     Dosage: 2 TEASPOOONS
     Route: 048
     Dates: start: 20151123
  2. CHILDRENS ZYRTEC [Suspect]
     Active Substance: CETIRIZINE HYDROCHLORIDE
     Route: 048

REACTIONS (2)
  - Product use issue [Unknown]
  - Off label use [Unknown]
